FAERS Safety Report 6731143-5 (Version None)
Quarter: 2010Q2

REPORT INFORMATION
  Report Type: 
  Country: None (occurrence: None)
  Receive Date: 20100518
  Receipt Date: 20100510
  Transmission Date: 20101027
  Serious: Yes (Life-Threatening, Hospitalization)
  Sender: FDA-Public Use
  Company Number: ES-GENENTECH-287708

PATIENT
  Sex: Female
  Weight: 68 kg

DRUGS (47)
  1. BLINDED BEVACIZUMAB [Suspect]
     Dosage: 1 UNK, Q14D
     Route: 042
     Dates: start: 20090709, end: 20090730
  2. CYCLOPHOSPHAMIDE [Suspect]
     Dosage: 1 UNK, Q14D
     Route: 042
     Dates: start: 20090709, end: 20090730
  3. DOXORUBICIN HCL [Suspect]
     Dosage: 1 UNK, Q14D
     Route: 042
     Dates: start: 20090709, end: 20090730
  4. BLINDED PLACEBO [Suspect]
     Dosage: 1 UNK, Q14D
     Route: 042
     Dates: start: 20090709, end: 20090730
  5. PREDNISONE TAB [Suspect]
     Dosage: 1 UNK, Q14D
     Route: 042
     Dates: start: 20090709, end: 20090730
  6. BLINDED RITUXIMAB [Suspect]
     Dosage: 1 UNK, Q14D
     Route: 042
     Dates: start: 20090709, end: 20090730
  7. VINCRISTINE [Suspect]
     Dosage: 1 UNK, Q14D
     Route: 042
     Dates: start: 20090709, end: 20090730
  8. BLINDED BEVACIZUMAB [Suspect]
     Dosage: UNK
     Route: 042
  9. CYCLOPHOSPHAMIDE [Suspect]
     Dosage: UNK
     Route: 042
  10. DOXORUBICIN HCL [Suspect]
     Dosage: UNK
     Route: 042
  11. BLINDED PLACEBO [Suspect]
     Dosage: UNK
     Route: 042
  12. PREDNISONE TAB [Suspect]
     Dosage: UNK
     Route: 042
  13. BLINDED RITUXIMAB [Suspect]
     Dosage: UNK
     Route: 042
  14. VINCRISTINE [Suspect]
     Dosage: UNK
     Route: 042
  15. BLINDED BEVACIZUMAB [Suspect]
     Dosage: UNK
     Route: 042
     Dates: end: 20091127
  16. CYCLOPHOSPHAMIDE [Suspect]
     Dosage: UNK
     Route: 042
     Dates: end: 20091127
  17. DOXORUBICIN HCL [Suspect]
     Dosage: UNK
     Route: 042
     Dates: end: 20091127
  18. BLINDED PLACEBO [Suspect]
     Dosage: UNK
     Route: 042
     Dates: end: 20091127
  19. PREDNISONE TAB [Suspect]
     Dosage: UNK
     Route: 042
     Dates: end: 20091127
  20. BLINDED RITUXIMAB [Suspect]
     Dosage: UNK
     Route: 042
     Dates: end: 20091127
  21. VINCRISTINE [Suspect]
     Dosage: UNK
     Route: 042
     Dates: end: 20091127
  22. BLINDED BEVACIZUMAB [Suspect]
     Dosage: UNK
     Route: 042
     Dates: start: 20091204, end: 20100305
  23. CYCLOPHOSPHAMIDE [Suspect]
     Dosage: UNK
     Route: 042
     Dates: start: 20091204, end: 20100305
  24. DOXORUBICIN HCL [Suspect]
     Dosage: UNK
     Route: 042
     Dates: start: 20091204, end: 20100305
  25. BLINDED PLACEBO [Suspect]
     Dosage: UNK
     Route: 042
     Dates: start: 20091204, end: 20100305
  26. PREDNISONE TAB [Suspect]
     Dosage: UNK
     Route: 042
     Dates: start: 20091204, end: 20100305
  27. BLINDED RITUXIMAB [Suspect]
     Dosage: UNK
     Route: 042
     Dates: start: 20091204, end: 20100305
  28. VINCRISTINE [Suspect]
     Dosage: UNK
     Route: 042
     Dates: start: 20091204, end: 20100305
  29. BLINDED BEVACIZUMAB [Suspect]
     Dosage: UNK
     Route: 042
     Dates: start: 20100312
  30. CYCLOPHOSPHAMIDE [Suspect]
     Dosage: UNK
     Route: 042
     Dates: start: 20100312
  31. DOXORUBICIN HCL [Suspect]
     Dosage: UNK
     Route: 042
     Dates: start: 20100312
  32. BLINDED PLACEBO [Suspect]
     Dosage: UNK
     Route: 042
     Dates: start: 20100312
  33. PREDNISONE TAB [Suspect]
     Dosage: UNK
     Route: 042
     Dates: start: 20100312
  34. BLINDED RITUXIMAB [Suspect]
     Dosage: UNK
     Route: 042
     Dates: start: 20100312
  35. VINCRISTINE [Suspect]
     Dosage: UNK
     Route: 042
     Dates: start: 20100312
  36. RITUXAN [Suspect]
     Indication: DIFFUSE LARGE B-CELL LYMPHOMA
     Dosage: 600 MG, Q14D
     Route: 042
     Dates: start: 20090710
  37. CYCLOPHOSPHAMIDE [Suspect]
     Indication: DIFFUSE LARGE B-CELL LYMPHOMA
     Dosage: 1200 MG, Q14D
     Route: 042
     Dates: start: 20090710, end: 20090730
  38. CYCLOPHOSPHAMIDE [Suspect]
     Route: 042
  39. CYCLOPHOSPHAMIDE [Suspect]
     Dosage: 1200 MG, Q14D
     Route: 042
  40. DOXORUBICIN HCL [Suspect]
     Indication: DIFFUSE LARGE B-CELL LYMPHOMA
     Dosage: 80 MG, Q14D
     Route: 042
     Dates: start: 20090710
  41. PREDNISONE TAB [Suspect]
     Indication: DIFFUSE LARGE B-CELL LYMPHOMA
     Dosage: 500 MG, Q14D
     Route: 048
     Dates: start: 20090710
  42. VINCRISTINE [Suspect]
     Indication: DIFFUSE LARGE B-CELL LYMPHOMA
     Dosage: 2 MG, Q14D
     Route: 042
     Dates: start: 20090710
  43. PANTOPRAZOLE [Concomitant]
     Indication: DRUG USE FOR UNKNOWN INDICATION
  44. ASPIRIN [Concomitant]
     Indication: DRUG USE FOR UNKNOWN INDICATION
  45. ALLOPURINOL [Concomitant]
     Indication: DRUG USE FOR UNKNOWN INDICATION
  46. LORAZEPAM [Concomitant]
     Indication: DRUG USE FOR UNKNOWN INDICATION
  47. SULFAMETHOXAZOLE AND TRIMETHOPRIM [Concomitant]
     Indication: DRUG USE FOR UNKNOWN INDICATION

REACTIONS (3)
  - FEBRILE NEUTROPENIA [None]
  - LOWER LIMB FRACTURE [None]
  - NEUTROPENIA [None]
